FAERS Safety Report 4750990-2 (Version None)
Quarter: 2005Q3

REPORT INFORMATION
  Report Type: 
  Country: None (occurrence: None)
  Receive Date: 20050822
  Receipt Date: 20050808
  Transmission Date: 20060218
  Serious: Yes (Other)
  Sender: FDA-Public Use
  Company Number: 2005112870

PATIENT
  Sex: Female

DRUGS (1)
  1. BENADRYL [Suspect]
     Indication: RASH
     Dosage: ORAL
     Route: 048

REACTIONS (10)
  - ANXIETY [None]
  - BLISTER [None]
  - DYSPNOEA [None]
  - OEDEMA PERIPHERAL [None]
  - PALPITATIONS [None]
  - PANIC ATTACK [None]
  - PHARYNGEAL OEDEMA [None]
  - PRURITUS [None]
  - RASH GENERALISED [None]
  - URTICARIA [None]
